FAERS Safety Report 12592567 (Version 2)
Quarter: 2016Q3

REPORT INFORMATION
  Report Type: Spontaneous
  Country: FR (occurrence: FR)
  Receive Date: 20160726
  Receipt Date: 20160824
  Transmission Date: 20161109
  Serious: Yes (Hospitalization)
  Sender: FDA-Public Use
  Company Number: FR-JNJFOC-20160717472

PATIENT
  Age: 62 Year
  Sex: Female

DRUGS (11)
  1. OFLOXACINE [Suspect]
     Active Substance: OFLOXACIN
     Indication: STAPHYLOCOCCAL SEPSIS
     Route: 048
     Dates: start: 20160615, end: 20160619
  2. LOXEN [Concomitant]
     Active Substance: NICARDIPINE HYDROCHLORIDE
     Indication: HYPERTENSION
     Dosage: FOR A LONG TIME
     Route: 048
  3. LEVOTHYROX [Concomitant]
     Active Substance: LEVOTHYROXINE
     Indication: PRODUCT USED FOR UNKNOWN INDICATION
     Route: 065
  4. OFLOXACINE [Suspect]
     Active Substance: OFLOXACIN
     Indication: STAPHYLOCOCCAL SEPSIS
     Route: 048
     Dates: start: 20160619, end: 20160619
  5. LYRICA [Suspect]
     Active Substance: PREGABALIN
     Indication: PAIN
     Dosage: TREATMENT NOT FOR A LONG TIME
     Route: 048
     Dates: start: 20160617, end: 20160619
  6. RIFAMPIN. [Concomitant]
     Active Substance: RIFAMPIN
     Indication: STAPHYLOCOCCAL SEPSIS
     Route: 048
  7. OXYNORM [Concomitant]
     Active Substance: OXYCODONE HYDROCHLORIDE
     Indication: PAIN
     Dosage: 8 CAPSULES PER DAY MAX, IF NECESSARY
     Route: 048
     Dates: end: 20160612
  8. DUROGESIC [Suspect]
     Active Substance: FENTANYL
     Indication: PAIN
     Route: 062
     Dates: end: 20160619
  9. CORDARONE [Concomitant]
     Active Substance: AMIODARONE HYDROCHLORIDE
     Indication: PRODUCT USED FOR UNKNOWN INDICATION
     Dosage: FOR A LONG TIME
     Route: 048
  10. CYMBALTA [Suspect]
     Active Substance: DULOXETINE HYDROCHLORIDE
     Indication: DEPRESSION
     Route: 048
     Dates: end: 20160619
  11. BISOPROLOL [Concomitant]
     Active Substance: BISOPROLOL
     Indication: HYPERTENSION
     Dosage: FOR A LONG TIME
     Route: 048

REACTIONS (5)
  - Hallucination [Recovered/Resolved]
  - Confusional state [Recovered/Resolved]
  - Seizure [Recovered/Resolved]
  - Hypothermia [Unknown]
  - Fall [Unknown]

NARRATIVE: CASE EVENT DATE: 20160619
